FAERS Safety Report 12294195 (Version 1)
Quarter: 2016Q2

REPORT INFORMATION
  Report Type: Spontaneous
  Country: US (occurrence: US)
  Receive Date: 20160422
  Receipt Date: 20160422
  Transmission Date: 20160815
  Serious: Yes (Hospitalization)
  Sender: FDA-Public Use
  Company Number: US-BEH-2016061702

PATIENT
  Sex: Male
  Weight: 128 kg

DRUGS (16)
  1. SODIUM CHLORIDE. [Concomitant]
     Active Substance: SODIUM CHLORIDE
  2. OXYGEN. [Concomitant]
     Active Substance: OXYGEN
  3. FUROSEMIDE. [Concomitant]
     Active Substance: FUROSEMIDE
  4. FLOVENT [Concomitant]
     Active Substance: FLUTICASONE PROPIONATE
  5. SPIRIVA [Concomitant]
     Active Substance: TIOTROPIUM BROMIDE MONOHYDRATE
  6. DIPHENHYDRAMINE. [Concomitant]
     Active Substance: DIPHENHYDRAMINE
  7. AZITHROMYCIN ANHYDROUS. [Concomitant]
     Active Substance: AZITHROMYCIN ANHYDROUS
  8. COMTAN [Concomitant]
     Active Substance: ENTACAPONE
  9. EPIPEN [Concomitant]
     Active Substance: EPINEPHRINE
  10. PREDNISONE. [Concomitant]
     Active Substance: PREDNISONE
  11. TEMAZEPAM. [Concomitant]
     Active Substance: TEMAZEPAM
  12. BENAZEPRIL-HCTZ [Concomitant]
  13. ZEMAIRA [Suspect]
     Active Substance: .ALPHA.1-PROTEINASE INHIBITOR HUMAN
     Indication: ALPHA-1 ANTI-TRYPSIN DEFICIENCY
     Route: 042
     Dates: start: 20090316
  14. CARBIDOPA. [Concomitant]
     Active Substance: CARBIDOPA
  15. SINEMET [Concomitant]
     Active Substance: CARBIDOPA\LEVODOPA
  16. LMX [Concomitant]
     Active Substance: LIDOCAINE

REACTIONS (1)
  - Hospitalisation [Unknown]
